FAERS Safety Report 12468998 (Version 1)
Quarter: 2016Q2

REPORT INFORMATION
  Report Type: Spontaneous
  Country: FR (occurrence: FR)
  Receive Date: 20160615
  Receipt Date: 20160615
  Transmission Date: 20160815
  Serious: Yes (Death)
  Sender: FDA-Public Use
  Company Number: FR-ROCHE-1773997

PATIENT
  Age: 53 Year
  Sex: Female

DRUGS (2)
  1. COTELLIC [Suspect]
     Active Substance: COBIMETINIB
     Indication: MALIGNANT MELANOMA STAGE IV
     Route: 048
     Dates: start: 20160421
  2. ZELBORAF [Suspect]
     Active Substance: VEMURAFENIB
     Indication: MALIGNANT MELANOMA STAGE IV
     Dosage: TABLET 240MG
     Route: 048
     Dates: start: 20160421

REACTIONS (4)
  - Red blood cell count decreased [Fatal]
  - Dyspnoea [Fatal]
  - Sudden death [Fatal]
  - Hypertension [Fatal]

NARRATIVE: CASE EVENT DATE: 20160502
